FAERS Safety Report 25985319 (Version 1)
Quarter: 2025Q4

REPORT INFORMATION
  Report Type: Spontaneous
  Country: US (occurrence: None)
  Receive Date: 20251031
  Receipt Date: 20251031
  Transmission Date: 20260119
  Serious: Yes (Hospitalization)
  Sender: FDA-CTU
  Company Number: None

PATIENT
  Age: 84 Year
  Sex: Female

DRUGS (13)
  1. COLLAGENASE SANTYL [Suspect]
     Active Substance: COLLAGENASE CLOSTRIDIUM HISTOLYTICUM
     Indication: Wound
     Dosage: FREQUENCY : DAILY;?
     Route: 061
     Dates: start: 20251024, end: 20251031
  2. VITAMINS [Concomitant]
     Active Substance: VITAMINS
  3. MYRBETRIQ [Concomitant]
     Active Substance: MIRABEGRON
  4. TYLENOL [Concomitant]
     Active Substance: ACETAMINOPHEN
  5. VITAMIN C [Concomitant]
     Active Substance: ASCORBIC ACID
  6. VITAMIN D [Concomitant]
     Active Substance: VITAMIN D NOS
  7. VITAMIN E [Concomitant]
     Active Substance: .ALPHA.-TOCOPHEROL
  8. MENAQUINONE 6 [Concomitant]
     Active Substance: MENAQUINONE 6
  9. ADVIL [Concomitant]
     Active Substance: IBUPROFEN
  10. ASPIRIN [Concomitant]
     Active Substance: ASPIRIN
  11. CORTIZONE 10 [Concomitant]
     Active Substance: HYDROCORTISONE
  12. FISH OIL [Concomitant]
     Active Substance: FISH OIL
  13. LISINOPRIL [Concomitant]
     Active Substance: LISINOPRIL

REACTIONS (4)
  - Application site burn [None]
  - Pain [None]
  - Screaming [None]
  - Drug hypersensitivity [None]

NARRATIVE: CASE EVENT DATE: 20251031
